FAERS Safety Report 10530649 (Version 1)
Quarter: 2014Q4

REPORT INFORMATION
  Report Type: Spontaneous
  Country: US (occurrence: None)
  Receive Date: 20141020
  Receipt Date: 20141020
  Transmission Date: 20150528
  Serious: Yes (Other)
  Sender: FDA-Public Use
  Company Number: None

PATIENT
  Age: 73 Year
  Sex: Female

DRUGS (1)
  1. PROLIA [Suspect]
     Active Substance: DENOSUMAB
     Indication: OSTEOPOROSIS
     Dosage: 60 MG/ML EVERY 6 MONTHS SUBCUTANEOUS
     Route: 058
     Dates: start: 20140515

REACTIONS (4)
  - Arthralgia [None]
  - Restless legs syndrome [None]
  - Joint swelling [None]
  - Pain in extremity [None]

NARRATIVE: CASE EVENT DATE: 20141016
